FAERS Safety Report 9166556 (Version 1)
Quarter: 2013Q1

REPORT INFORMATION
  Report Type: Spontaneous
  Country: US (occurrence: US)
  Receive Date: 20130315
  Receipt Date: 20130315
  Transmission Date: 20140127
  Serious: No
  Sender: FDA-Public Use
  Company Number: US-ASTRAZENECA-2013SE13810

PATIENT
  Age: 34 Year
  Sex: Female

DRUGS (3)
  1. OMEPRAZOLE [Suspect]
     Route: 048
  2. PRILOSEC OTC [Suspect]
     Route: 048
     Dates: start: 2006
  3. B12 [Concomitant]

REACTIONS (5)
  - Chest pain [Unknown]
  - Paraesthesia [Unknown]
  - Muscle spasms [Unknown]
  - Throat tightness [Unknown]
  - Irritable bowel syndrome [Unknown]
